FAERS Safety Report 15295402 (Version 1)
Quarter: 2018Q3

REPORT INFORMATION
  Report Type: Spontaneous
  Country: US (occurrence: US)
  Receive Date: 20180807
  Receipt Date: 20180807
  Transmission Date: 20181010
  Serious: Yes (Other)
  Sender: FDA-Public Use
  Company Number: None

PATIENT
  Age: 60 Year
  Sex: Male

DRUGS (9)
  1. CALCIUM [Concomitant]
     Active Substance: CALCIUM
     Dates: start: 20180517
  2. ZOLOFT [Concomitant]
     Active Substance: SERTRALINE HYDROCHLORIDE
     Dates: start: 20180517
  3. AMPYRA [Concomitant]
     Active Substance: DALFAMPRIDINE
  4. OCREVUS [Suspect]
     Active Substance: OCRELIZUMAB
     Indication: MULTIPLE SCLEROSIS
     Route: 042
     Dates: start: 20180410
  5. VITAMIN B12 [Concomitant]
     Active Substance: CYANOCOBALAMIN
     Dates: start: 20180517
  6. AMANTADINE. [Concomitant]
     Active Substance: AMANTADINE HYDROCHLORIDE
     Dates: start: 20180517
  7. OCUVITE [Concomitant]
     Active Substance: VITAMINS
     Dates: start: 20180517
  8. BACLOFEN. [Concomitant]
     Active Substance: BACLOFEN
     Dates: start: 20180517
  9. MULTIVITAMIN [Concomitant]
     Active Substance: VITAMINS
     Dates: start: 20180517

REACTIONS (2)
  - Pain [None]
  - Fatigue [None]
